FAERS Safety Report 14747735 (Version 2)
Quarter: 2018Q2

REPORT INFORMATION
  Report Type: Report from Study
  Country: CA (occurrence: CA)
  Receive Date: 20180411
  Receipt Date: 20180411
  Transmission Date: 20180711
  Serious: Yes (Death, Hospitalization, Other)
  Sender: FDA-Public Use
  Company Number: PHHY2014CA054956

PATIENT
  Age: 67 Year
  Sex: Male

DRUGS (16)
  1. METOPROLOL. [Suspect]
     Active Substance: METOPROLOL
     Indication: PRODUCT USED FOR UNKNOWN INDICATION
     Dosage: 150 MG, BID
     Route: 048
  2. COTAZYM [Suspect]
     Active Substance: PANCRELIPASE
     Indication: PRODUCT USED FOR UNKNOWN INDICATION
     Dosage: 3 DF, TID
     Route: 065
  3. SANDOSTATIN LAR DEPOT [Suspect]
     Active Substance: OCTREOTIDE ACETATE
     Dosage: UNK
     Route: 030
     Dates: start: 20161007
  4. AFINITOR [Suspect]
     Active Substance: EVEROLIMUS
     Indication: CARCINOID TUMOUR
     Dosage: UNK
     Route: 048
     Dates: start: 20140710, end: 201509
  5. SANDOSTATIN LAR DEPOT [Suspect]
     Active Substance: OCTREOTIDE ACETATE
     Dosage: 60 MG, EVERY 24 DAYS
     Route: 030
  6. SANDOSTATIN LAR DEPOT [Suspect]
     Active Substance: OCTREOTIDE ACETATE
     Dosage: 60 MG, QMO
     Route: 030
  7. SANDOSTATIN LAR DEPOT [Suspect]
     Active Substance: OCTREOTIDE ACETATE
     Dosage: 30 MG, QMO(EVERY 4 WEEKS)
     Route: 030
     Dates: start: 20161103, end: 20161201
  8. SANDOSTATIN LAR DEPOT [Suspect]
     Active Substance: OCTREOTIDE ACETATE
     Dosage: 50 MG, QMO (EVERY 4 WEEKS)
     Route: 030
     Dates: start: 20170511
  9. SANDOSTATIN LAR DEPOT [Suspect]
     Active Substance: OCTREOTIDE ACETATE
     Dosage: 40 MG, QMO (EVERY 4 WEEKS)
     Route: 030
     Dates: end: 20170414
  10. METFORMIN [Suspect]
     Active Substance: METFORMIN HYDROCHLORIDE
     Indication: HYPERGLYCAEMIA
     Dosage: 500 MG, TID
     Route: 048
  11. SANDOSTATIN [Suspect]
     Active Substance: OCTREOTIDE ACETATE
     Indication: CARCINOID SYNDROME
     Dosage: 100 UG, TID, 10 DAYS POST 1ST SANDOSTATIN LAR INJECTION
     Route: 058
     Dates: start: 20140424, end: 20140510
  12. SANDOSTATIN LAR DEPOT [Suspect]
     Active Substance: OCTREOTIDE ACETATE
     Indication: CARCINOID TUMOUR
     Dosage: 30 MG, QMO
     Route: 030
     Dates: start: 20140501
  13. SANDOSTATIN LAR DEPOT [Suspect]
     Active Substance: OCTREOTIDE ACETATE
     Dosage: 60 MG, UNK (EVERY 21 DAYS)
     Route: 030
  14. SANDOSTATIN LAR DEPOT [Suspect]
     Active Substance: OCTREOTIDE ACETATE
     Dosage: 60 UNK, UNK
     Route: 030
  15. MORPHINE [Suspect]
     Active Substance: MORPHINE
     Indication: PRODUCT USED FOR UNKNOWN INDICATION
     Route: 065
  16. XARELTO [Concomitant]
     Active Substance: RIVAROXABAN
     Indication: PRODUCT USED FOR UNKNOWN INDICATION
     Dosage: 20 MG, UNK
     Route: 065

REACTIONS (30)
  - Blood pressure systolic increased [Unknown]
  - Blood urine present [Unknown]
  - Hyperglycaemia [Unknown]
  - Asthenia [Unknown]
  - Blood pressure decreased [Unknown]
  - Injection site pain [Recovered/Resolved]
  - Abdominal distension [Fatal]
  - Intestinal obstruction [Fatal]
  - Diarrhoea [Recovered/Resolved]
  - Burning sensation [Unknown]
  - Cough [Unknown]
  - Heart rate decreased [Unknown]
  - Incorrect dose administered [Unknown]
  - Influenza [Unknown]
  - Oropharyngeal pain [Unknown]
  - Erythema [Unknown]
  - Urinary tract infection [Unknown]
  - Needle issue [Unknown]
  - Constipation [Fatal]
  - Medication residue present [Unknown]
  - Fatigue [Unknown]
  - Pain [Unknown]
  - Nausea [Unknown]
  - Inappropriate schedule of drug administration [Unknown]
  - Gastrointestinal disorder [Fatal]
  - Feeding disorder [Fatal]
  - Blood pressure diastolic decreased [Unknown]
  - Body temperature decreased [Unknown]
  - Anal incontinence [Unknown]
  - Diarrhoea [Not Recovered/Not Resolved]

NARRATIVE: CASE EVENT DATE: 20140912
